FAERS Safety Report 8508089-5 (Version None)
Quarter: 2012Q3

REPORT INFORMATION
  Report Type: 
  Country: None (occurrence: None)
  Receive Date: 20120709
  Receipt Date: 20120709
  Transmission Date: 20120928
  Serious: No
  Sender: FDA-Public Use
  Company Number: None

PATIENT

DRUGS (2)
  1. NEO-SYNEPHRINE PHENYLEPHRINE 100MCG/ ML [Suspect]
     Dosage: 100MCG/ML
  2. NEOSTIGMINE 1MG/ML [Suspect]
     Dosage: 1 MG/ML

REACTIONS (2)
  - MEDICATION ERROR [None]
  - CIRCUMSTANCE OR INFORMATION CAPABLE OF LEADING TO MEDICATION ERROR [None]
